FAERS Safety Report 15860177 (Version 1)
Quarter: 2019Q1

REPORT INFORMATION
  Report Type: Spontaneous
  Country: US (occurrence: US)
  Receive Date: 20190123
  Receipt Date: 20190123
  Transmission Date: 20190417
  Serious: Yes (Hospitalization)
  Sender: FDA-Public Use
  Company Number: PHHY2019US010463

PATIENT
  Age: 76 Year
  Sex: Female

DRUGS (5)
  1. LIDOCAINE. [Suspect]
     Active Substance: LIDOCAINE
     Indication: LOCAL ANAESTHESIA
     Dosage: 3 DOSES OF 25-30 ML 4% AND 2 DOSES OF 20-30 2% FOR AN APPROXIMATE TOTAL OF } 3800 MG (} 45 MG/KG)
     Route: 061
  2. WARFARIN [Concomitant]
     Active Substance: WARFARIN
     Indication: CARDIAC FAILURE
     Route: 065
  3. ENOXAPARIN [Concomitant]
     Active Substance: ENOXAPARIN
     Indication: CARDIAC FAILURE
     Route: 065
  4. CARVEDILOL. [Concomitant]
     Active Substance: CARVEDILOL
     Indication: CARDIAC FAILURE
     Route: 065
  5. FUROSEMIDE. [Concomitant]
     Active Substance: FUROSEMIDE
     Indication: CARDIAC FAILURE
     Route: 042

REACTIONS (14)
  - Aggression [Unknown]
  - Seizure [Unknown]
  - Bradycardia [Recovering/Resolving]
  - Confusional state [Recovering/Resolving]
  - Unresponsive to stimuli [Recovering/Resolving]
  - Dysarthria [Unknown]
  - Hypoxia [Recovering/Resolving]
  - Respiratory failure [Unknown]
  - Renal tubular necrosis [Recovered/Resolved]
  - Hypotension [Recovering/Resolving]
  - Acute kidney injury [Recovered/Resolved]
  - Toxicity to various agents [Unknown]
  - Pulse absent [Recovering/Resolving]
  - Right ventricular dysfunction [Unknown]
